FAERS Safety Report 9788724 (Version 3)
Quarter: 2014Q1

REPORT INFORMATION
  Report Type: Spontaneous
  Country: US (occurrence: DE)
  Receive Date: 20131230
  Receipt Date: 20140127
  Transmission Date: 20141002
  Serious: Yes (Hospitalization, Other)
  Sender: FDA-Public Use
  Company Number: DE-FRI-1000052408

PATIENT
  Age: 69 Year
  Sex: Male
  Weight: 78 kg

DRUGS (12)
  1. ROFLUMILAST [Suspect]
     Indication: CHRONIC OBSTRUCTIVE PULMONARY DISEASE
     Dosage: 500 MCG
     Route: 048
     Dates: start: 20130912
  2. RELIQUI [Concomitant]
  3. GENUAIR [Concomitant]
  4. TEPILTA [Concomitant]
  5. CORVATON [Concomitant]
  6. NOVAMINSULFON [Concomitant]
  7. NEBIVOLOL [Concomitant]
  8. SIMVASTATIN [Concomitant]
  9. PRETERAX [Concomitant]
  10. ASS [Concomitant]
  11. PREDNISOLONE [Concomitant]
  12. RAMILICH [Concomitant]

REACTIONS (8)
  - Coronary artery occlusion [Not Recovered/Not Resolved]
  - Condition aggravated [Not Recovered/Not Resolved]
  - Chronic obstructive pulmonary disease [Not Recovered/Not Resolved]
  - Cholecystectomy [Not Recovered/Not Resolved]
  - Myocardial infarction [Not Recovered/Not Resolved]
  - Weight decreased [Not Recovered/Not Resolved]
  - Eating disorder [Not Recovered/Not Resolved]
  - Ageusia [Not Recovered/Not Resolved]
